FAERS Safety Report 18404315 (Version 2)
Quarter: 2020Q4

REPORT INFORMATION
  Report Type: Spontaneous
  Country: HU (occurrence: HU)
  Receive Date: 20201020
  Receipt Date: 20201029
  Transmission Date: 20210114
  Serious: Yes (Other)
  Sender: FDA-Public Use
  Company Number: HU-TEVA-2020-HU-1840632

PATIENT
  Age: 53 Year
  Sex: Female

DRUGS (2)
  1. LIDOCAINE. [Concomitant]
     Active Substance: LIDOCAINE
     Indication: ANAESTHESIA
     Dates: start: 201910, end: 201910
  2. DEXA-RATIOPHARM 4 MG/ML INJECTION [Suspect]
     Active Substance: DEXAMETHASONE SODIUM PHOSPHATE
     Indication: MENIERE^S DISEASE
     Dosage: 4 MILLIGRAM/MILLILITERS DAILY;
     Dates: start: 201910, end: 201910

REACTIONS (1)
  - Tympanic membrane perforation [Recovered/Resolved]

NARRATIVE: CASE EVENT DATE: 202002
